FAERS Safety Report 8092721-7 (Version None)
Quarter: 2012Q1

REPORT INFORMATION
  Report Type: 
  Country: None (occurrence: None)
  Receive Date: 20120128
  Receipt Date: 20110803
  Transmission Date: 20120608
  Serious: No
  Sender: FDA-Public Use
  Company Number: US-ABBOTT-11P-163-0844065-00

PATIENT
  Sex: Male
  Weight: 90.8 kg

DRUGS (3)
  1. HUMIRA [Suspect]
     Indication: PSORIASIS
     Dates: start: 20080101, end: 20100801
  2. HUMIRA [Suspect]
     Dates: start: 20101201
  3. TOPICAL STEROID CREAM [Concomitant]
     Indication: PSORIASIS

REACTIONS (3)
  - ORAL CANDIDIASIS [None]
  - SCAR [None]
  - OESOPHAGEAL CANDIDIASIS [None]
